FAERS Safety Report 11522375 (Version 2)
Quarter: 2015Q3

REPORT INFORMATION
  Report Type: Spontaneous
  Country: FR (occurrence: FR)
  Receive Date: 20150918
  Receipt Date: 20150920
  Transmission Date: 20151125
  Serious: Yes (Death, Other)
  Sender: FDA-Public Use
  Company Number: PHHY2015FR112132

PATIENT

DRUGS (1)
  1. CICLOSPORIN [Suspect]
     Active Substance: CYCLOSPORINE
     Indication: STEM CELL TRANSPLANT
     Route: 065

REACTIONS (7)
  - Confusional state [Unknown]
  - Renal failure [Unknown]
  - Thrombotic microangiopathy [Fatal]
  - Lacunar infarction [Unknown]
  - Altered state of consciousness [Unknown]
  - Acute graft versus host disease [Fatal]
  - Hypertension [Fatal]
